FAERS Safety Report 9391440 (Version 2)
Quarter: 2014Q2

REPORT INFORMATION
  Report Type: Spontaneous
  Country: FR (occurrence: FR)
  Receive Date: 20130709
  Receipt Date: 20140521
  Transmission Date: 20141212
  Serious: Yes (Hospitalization, Other)
  Sender: FDA-Public Use
  Company Number: FR-UCBSA-090816

PATIENT
  Age: 38 Year
  Sex: Female

DRUGS (2)
  1. KEPPRA [Suspect]
     Indication: PARTIAL SEIZURES
     Dosage: 4 DF, 1 DAY, 500MG FILM COATED TABLET
     Route: 048
     Dates: start: 20130306, end: 201307
  2. TEMODAL [Suspect]
     Indication: GLIOBLASTOMA
     Dosage: 75 MG/M2, 1 DAY
     Route: 048
     Dates: start: 20130506, end: 20130601

REACTIONS (1)
  - Pancytopenia [Recovered/Resolved]
